FAERS Safety Report 5088814-9 (Version None)
Quarter: 2006Q3

REPORT INFORMATION
  Report Type: 
  Country: None (occurrence: None)
  Receive Date: 20060825
  Receipt Date: 20060821
  Transmission Date: 20061208
  Serious: Yes (Death, Hospitalization)
  Sender: FDA-Public Use
  Company Number: 459392

PATIENT
  Age: 86 Year
  Sex: Female

DRUGS (13)
  1. CARVEDILOL [Suspect]
     Indication: MYOCARDIAL INFARCTION
     Dosage: 1.25MG TWICE PER DAY
     Route: 048
     Dates: start: 20041221, end: 20060130
  2. BLOPRESS [Suspect]
     Dosage: 4MG PER DAY
     Route: 048
     Dates: start: 20041217, end: 20050215
  3. LIVALO [Suspect]
     Dosage: 1MG PER DAY
     Route: 048
     Dates: start: 20041217, end: 20050215
  4. 8-HOUR BAYER [Concomitant]
     Dates: start: 20041216
  5. GASTER D [Concomitant]
     Dosage: 20MG PER DAY
     Route: 048
     Dates: start: 20041216
  6. SIGMART [Concomitant]
     Dosage: 10MG PER DAY
     Route: 048
     Dates: start: 20041217
  7. FRANDOL [Concomitant]
     Dates: start: 20041217
  8. BASEN [Concomitant]
     Dosage: .9MG PER DAY
     Route: 048
  9. DAONIL [Concomitant]
  10. LASIX [Concomitant]
     Dates: start: 20041221
  11. ALDACTONE A [Concomitant]
     Dates: start: 20041221
  12. MEVALOTIN [Concomitant]
     Dosage: 10MG PER DAY
     Route: 048
     Dates: start: 20050216
  13. NU-LOTAN [Concomitant]
     Dosage: 50MG PER DAY
     Route: 048
     Dates: start: 20050216

REACTIONS (4)
  - ATRIAL FIBRILLATION [None]
  - CARDIAC FAILURE [None]
  - HEPATIC FUNCTION ABNORMAL [None]
  - PNEUMONIA [None]
